FAERS Safety Report 11595398 (Version 1)
Quarter: 2015Q4

REPORT INFORMATION
  Report Type: Spontaneous
  Country: US (occurrence: None)
  Receive Date: 20151002
  Receipt Date: 20151002
  Transmission Date: 20160304
  Serious: Yes (Death)
  Sender: FDA-Public Use
  Company Number: 1713747-2015-999354

PATIENT
  Sex: Male

DRUGS (3)
  1. LIBERTY SET [Concomitant]
  2. DELFLEX [Suspect]
     Active Substance: CALCIUM CHLORIDE\DEXTROSE MONOHYDRATE\MAGNESIUM CHLORIDE\SODIUM CHLORIDE\SODIUM LACTATE
     Indication: PERITONEAL DIALYSIS
  3. PD SOLUTION [Concomitant]

REACTIONS (2)
  - Nephropathy [None]
  - Cardiac failure [None]

NARRATIVE: CASE EVENT DATE: 20150128
